FAERS Safety Report 9326711 (Version 1)
Quarter: 2013Q2

REPORT INFORMATION
  Report Type: Spontaneous
  Country: US (occurrence: US)
  Receive Date: 20130604
  Receipt Date: 20130604
  Transmission Date: 20140414
  Serious: No
  Sender: FDA-Public Use
  Company Number: US-AMGEN-USASP2013032980

PATIENT
  Age: 46 Year
  Sex: Male
  Weight: 92.97 kg

DRUGS (1)
  1. ENBREL [Suspect]
     Indication: PSORIASIS
     Dosage: 50 MG/ML, 2 TIMES/WK
     Route: 058
     Dates: start: 20130417

REACTIONS (7)
  - Arthritis [Unknown]
  - Inflammation [Recovered/Resolved]
  - Muscle spasms [Recovered/Resolved]
  - Injection site swelling [Unknown]
  - Injection site pruritus [Unknown]
  - Injection site erythema [Recovered/Resolved]
  - Injection site rash [Recovered/Resolved]
